FAERS Safety Report 7744663-1 (Version None)
Quarter: 2011Q3

REPORT INFORMATION
  Report Type: 
  Country: None (occurrence: None)
  Receive Date: 20110912
  Receipt Date: 20110905
  Transmission Date: 20111222
  Serious: Yes (Other)
  Sender: FDA-Public Use
  Company Number: PHHY2011JP79637

PATIENT
  Sex: Female

DRUGS (1)
  1. TEGRETOL [Suspect]
     Indication: CONVULSION
     Dosage: UNK UKN, UNK
     Route: 048

REACTIONS (4)
  - PAIN OF SKIN [None]
  - HYPERAESTHESIA [None]
  - COMA [None]
  - HYPERHIDROSIS [None]
